FAERS Safety Report 17635649 (Version 3)
Quarter: 2020Q2

REPORT INFORMATION
  Report Type: Report from Study
  Country: None (occurrence: US)
  Receive Date: 20200407
  Receipt Date: 20200511
  Transmission Date: 20200713
  Serious: No
  Sender: FDA-Public Use
  Company Number: US-BIOVITRUM-2020US0699

PATIENT
  Sex: Female

DRUGS (1)
  1. KINERET [Suspect]
     Active Substance: ANAKINRA
     Indication: PRODUCT USED FOR UNKNOWN INDICATION
     Route: 058
     Dates: start: 20190904

REACTIONS (5)
  - Herpes zoster [Unknown]
  - Upper respiratory tract infection [Unknown]
  - Off label use [Unknown]
  - Memory impairment [Unknown]
  - Product dose omission [Unknown]
